FAERS Safety Report 21498182 (Version 2)
Quarter: 2024Q1

REPORT INFORMATION
  Report Type: Report from Study
  Country: GB (occurrence: GB)
  Receive Date: 20221024
  Receipt Date: 20240213
  Transmission Date: 20240410
  Serious: Yes (Other)
  Sender: FDA-Public Use
  Company Number: GB-TAKEDA-2022TUS077059

PATIENT
  Age: 71 Year
  Sex: Female

DRUGS (1)
  1. VEDOLIZUMAB [Suspect]
     Active Substance: VEDOLIZUMAB
     Indication: Colitis ulcerative
     Dosage: 108 MILLIGRAM, Q2WEEKS
     Route: 058

REACTIONS (8)
  - Colitis ulcerative [Unknown]
  - Device issue [Unknown]
  - Injection site mass [Unknown]
  - Device leakage [Unknown]
  - Injection site discomfort [Unknown]
  - Injection site pain [Unknown]
  - Root canal infection [Unknown]
  - Sinusitis [Unknown]
